FAERS Safety Report 7558536-0 (Version None)
Quarter: 2011Q2

REPORT INFORMATION
  Report Type: 
  Country: None (occurrence: None)
  Receive Date: 20110620
  Receipt Date: 20110616
  Transmission Date: 20111010
  Serious: Yes (Life-Threatening, Hospitalization)
  Sender: FDA-Public Use
  Company Number: FR-BRISTOL-MYERS SQUIBB COMPANY-15740814

PATIENT
  Age: 63 Year
  Sex: Male

DRUGS (3)
  1. CARBOPLATIN [Suspect]
     Indication: HEAD AND NECK CANCER
     Dosage: ON THE FIRST 4 DAYS OF A 21 DAY CYCLE TOTAL INF:4
     Route: 042
     Dates: start: 20091123, end: 20091126
  2. ERBITUX [Suspect]
     Indication: HEAD AND NECK CANCER
     Dosage: RECENT INF: 30NOV09 FOLLOWING INITIAL DOSE-30NOV09:475MG,1 IN 1 WK TOTAL INF:3
     Route: 042
     Dates: start: 20091116, end: 20091130
  3. FLUOROURACIL [Suspect]
     Indication: HEAD AND NECK CANCER
     Dosage: ON THE FIRST 4 DAYS OF A 21 DAY CYCLE
     Route: 042
     Dates: start: 20091123, end: 20091123

REACTIONS (1)
  - MYOCARDIAL INFARCTION [None]
